FAERS Safety Report 19912292 (Version 1)
Quarter: 2021Q4

REPORT INFORMATION
  Report Type: Report from Study
  Country: CN (occurrence: CN)
  Receive Date: 20211004
  Receipt Date: 20211004
  Transmission Date: 20220303
  Serious: Yes (Hospitalization, Other)
  Sender: FDA-Public Use
  Company Number: CN-BRISTOL-MYERS SQUIBB COMPANY-BMS-2021-085411

PATIENT
  Age: 70 Year
  Sex: Male

DRUGS (13)
  1. NIVOLUMAB [Suspect]
     Active Substance: NIVOLUMAB
     Indication: Non-small cell lung cancer
     Dosage: 360 MILLIGRAM
     Route: 042
     Dates: start: 20210510, end: 20210523
  2. NIVOLUMAB [Suspect]
     Active Substance: NIVOLUMAB
     Dosage: 360 MILLIGRAM
     Route: 042
     Dates: start: 20210531, end: 20210613
  3. NIVOLUMAB [Suspect]
     Active Substance: NIVOLUMAB
     Dosage: 360 MILLIGRAM
     Route: 042
     Dates: start: 20210621, end: 20210712
  4. NIVOLUMAB [Suspect]
     Active Substance: NIVOLUMAB
     Dosage: 360 MILLIGRAM
     Route: 042
     Dates: start: 20210821
  5. CATEQUENTINIB [Suspect]
     Active Substance: CATEQUENTINIB
     Indication: Non-small cell lung cancer
     Dosage: 12 MILLIGRAM, QD
     Route: 048
     Dates: start: 20210510, end: 20210523
  6. CATEQUENTINIB [Suspect]
     Active Substance: CATEQUENTINIB
     Dosage: 12 MILLIGRAM, QD
     Route: 048
     Dates: start: 20210531, end: 20210613
  7. CATEQUENTINIB [Suspect]
     Active Substance: CATEQUENTINIB
     Dosage: 12 MILLIGRAM, QD
     Route: 048
     Dates: start: 20210621, end: 20210705
  8. CATEQUENTINIB [Suspect]
     Active Substance: CATEQUENTINIB
     Dosage: 12 MILLIGRAM, QD
     Route: 048
     Dates: start: 20210712, end: 20210726
  9. CATEQUENTINIB [Suspect]
     Active Substance: CATEQUENTINIB
     Dosage: 12 MILLIGRAM, QD
     Route: 048
     Dates: start: 20210816
  10. CEFOTIAM HYDROCHLORIDE [Concomitant]
     Active Substance: CEFOTIAM HYDROCHLORIDE
     Indication: Product used for unknown indication
     Dosage: 2 GRAM, BID
     Route: 042
  11. OMEPRAZOLE SODIUM [Concomitant]
     Active Substance: OMEPRAZOLE SODIUM
     Indication: Prophylaxis against gastrointestinal ulcer
     Dosage: 40 MILLIGRAM, QD
     Route: 042
  12. METHYLPREDNISOLONE [Concomitant]
     Active Substance: METHYLPREDNISOLONE
     Indication: Product used for unknown indication
     Dosage: 40 MILLIGRAM, BID
     Route: 065
  13. FOSFOMYCIN SODIUM [Concomitant]
     Active Substance: FOSFOMYCIN SODIUM
     Indication: Product used for unknown indication
     Dosage: 4 GRAM, QD
     Route: 065

REACTIONS (4)
  - Pneumonia [Unknown]
  - Emphysema [Unknown]
  - Arteriosclerosis coronary artery [Unknown]
  - Aortic arteriosclerosis [Unknown]

NARRATIVE: CASE EVENT DATE: 20210801
